FAERS Safety Report 7361191-6 (Version None)
Quarter: 2011Q1

REPORT INFORMATION
  Report Type: 
  Country: None (occurrence: None)
  Receive Date: 20110318
  Receipt Date: 20110314
  Transmission Date: 20110831
  Serious: Yes (Hospitalization, Other)
  Sender: FDA-Public Use
  Company Number: US-ROXANE LABORATORIES, INC.-2011-RO-00299RO

PATIENT
  Age: 52 Year
  Sex: Female

DRUGS (13)
  1. OXCARBAZEPINE [Suspect]
     Indication: BIPOLAR DISORDER
  2. ALPRAZOLAM [Suspect]
     Indication: MANIA
  3. CLONAZEPAM [Suspect]
     Indication: MANIA
  4. LITHIUM CARBONATE [Suspect]
     Indication: BIPOLAR DISORDER
  5. RISPERIDONE [Suspect]
     Indication: MANIA
     Dosage: 8 MG
  6. LORAZEPAM [Suspect]
     Route: 048
  7. ARIPIPRAZOLE [Suspect]
     Indication: MANIA
  8. CARBAMAZEPINE [Suspect]
     Indication: MANIA
     Dosage: 1200 MG
  9. CHLORPROMAZINE [Suspect]
     Indication: PARANOIA
  10. PERPHENAZINE [Suspect]
     Route: 048
  11. PERPHENAZINE [Suspect]
     Indication: PARANOIA
  12. PERPHENAZINE [Suspect]
     Dosage: 42 MG
     Route: 048
  13. TOPIRAMATE [Suspect]
     Indication: MANIA

REACTIONS (11)
  - WEIGHT INCREASED [None]
  - HYPOKALAEMIA [None]
  - OEDEMA PERIPHERAL [None]
  - DYSTONIA [None]
  - HYPOTENSION [None]
  - PYREXIA [None]
  - DRUG ABUSE [None]
  - DYSPHAGIA [None]
  - GLOSSITIS [None]
  - HEPATITIS [None]
  - PHYSICAL ASSAULT [None]
